FAERS Safety Report 7123823-7 (Version None)
Quarter: 2010Q4

REPORT INFORMATION
  Report Type: 
  Country: None (occurrence: None)
  Receive Date: 20101125
  Receipt Date: 20101117
  Transmission Date: 20110411
  Serious: Yes (Hospitalization, Other)
  Sender: FDA-Public Use
  Company Number: PHHO2010US17495

PATIENT
  Sex: Female
  Weight: 71 kg

DRUGS (3)
  1. FTY 720 FTY+CAP+MSC [Suspect]
     Indication: MULTIPLE SCLEROSIS
     Dosage: DOSE BLINDED
     Route: 048
     Dates: start: 20090227
  2. PROGESTERONE [Concomitant]
     Indication: ENDOMETRIOSIS
     Dosage: UNK
     Dates: start: 20100630
  3. ALPRAZOLAM [Concomitant]
     Indication: ANXIETY
     Dosage: UNK
     Dates: start: 19990101

REACTIONS (3)
  - CARDIAC ABLATION [None]
  - POST PROCEDURAL HAEMORRHAGE [None]
  - SUPRAVENTRICULAR TACHYCARDIA [None]
